FAERS Safety Report 7796108 (Version 2)
Quarter: 2013Q1

REPORT INFORMATION
  Report Type: Spontaneous
  Country: US (occurrence: None)
  Receive Date: 20110112
  Receipt Date: 20130206
  Transmission Date: 20140127
  Serious: Yes (Other)
  Sender: FDA-Public Use
  Company Number: JPI-P-013317

PATIENT
  Age: 40 Year
  Sex: Male
  Weight: 88.45 kg

DRUGS (10)
  1. XYREM [Suspect]
     Indication: NARCOLEPSY
     Route: 048
     Dates: start: 20090824
  2. TESTOSTERONE [Concomitant]
  3. TADALAFIL [Concomitant]
  4. TAMSULOSIN HYDROCHLORIDE [Concomitant]
  5. SOMATROPIN [Concomitant]
  6. THYROID [Concomitant]
  7. PAROXETINE HYDROCHLORIDE [Concomitant]
  8. VALSARTAN HYDROCHLOROTHIAZIDE [Concomitant]
  9. OMEPRAZOLE [Concomitant]
  10. OMEGA 3-ACID ETHYL ESTERS [Concomitant]

REACTIONS (1)
  - Atrial fibrillation [None]
